FAERS Safety Report 11471964 (Version 3)
Quarter: 2015Q4

REPORT INFORMATION
  Report Type: Report from Study
  Country: BR (occurrence: BR)
  Receive Date: 20150908
  Receipt Date: 20151209
  Transmission Date: 20160304
  Serious: Yes (Hospitalization, Other)
  Sender: FDA-Public Use
  Company Number: BR-ABBVIE-15P-020-1457049-00

PATIENT
  Age: 56 Year
  Sex: Female
  Weight: 85 kg

DRUGS (5)
  1. EUTHYROX [Concomitant]
     Active Substance: LEVOTHYROXINE SODIUM
     Indication: THYROID DISORDER
     Route: 048
  2. METHOTREXATE [Concomitant]
     Active Substance: METHOTREXATE
     Indication: ARTHRITIS
     Route: 050
  3. HUMIRA [Suspect]
     Active Substance: ADALIMUMAB
     Indication: RHEUMATOID ARTHRITIS
     Route: 058
     Dates: start: 20140430, end: 201508
  4. PREDNISONE. [Concomitant]
     Active Substance: PREDNISONE
     Indication: ARTHRITIS
     Route: 048
  5. METHOTREXATE [Concomitant]
     Active Substance: METHOTREXATE
     Route: 048

REACTIONS (5)
  - Liver disorder [Unknown]
  - Tuberculosis liver [Not Recovered/Not Resolved]
  - Pneumonia [Recovered/Resolved]
  - Hepatic atrophy [Unknown]
  - Ascites [Unknown]

NARRATIVE: CASE EVENT DATE: 2014
